FAERS Safety Report 5009401-4 (Version None)
Quarter: 2006Q2

REPORT INFORMATION
  Report Type: 
  Country: None (occurrence: None)
  Receive Date: 20060524
  Receipt Date: 20060217
  Transmission Date: 20061013
  Serious: Yes (Other)
  Sender: FDA-Public Use
  Company Number: PHNU2006DE00962

PATIENT
  Sex: Female
  Weight: 57 kg

DRUGS (2)
  1. FEMARA [Suspect]
     Indication: BREAST CANCER METASTATIC
     Dosage: 2.5 MG, QD
     Route: 048
     Dates: start: 20050401
  2. AREDIA [Concomitant]
     Indication: METASTASES TO BONE
     Dosage: 90 MG, QMO
     Dates: start: 20050401

REACTIONS (2)
  - PYREXIA [None]
  - TUMOUR LYSIS SYNDROME [None]
